FAERS Safety Report 4709788-3 (Version None)
Quarter: 2005Q3

REPORT INFORMATION
  Report Type: 
  Country: None (occurrence: None)
  Receive Date: 20050708
  Receipt Date: 20050629
  Transmission Date: 20060218
  Serious: Yes (Other)
  Sender: FDA-Public Use
  Company Number: US-JNJFOC-20050700112

PATIENT
  Sex: Female
  Weight: 95.71 kg

DRUGS (4)
  1. DURAGESIC-100 [Suspect]
     Route: 062
     Dates: start: 20050607, end: 20050628
  2. XANAX [Concomitant]
     Indication: ANXIETY
     Dates: start: 20040101
  3. EFFEXOR XR [Concomitant]
     Indication: DEPRESSION
     Dates: start: 20010101
  4. PHENERGAN [Concomitant]
     Indication: NAUSEA
     Dates: start: 20030101

REACTIONS (9)
  - APPLICATION SITE DERMATITIS [None]
  - BLOOD PRESSURE INCREASED [None]
  - DIARRHOEA [None]
  - HYPERHIDROSIS [None]
  - HYPOAESTHESIA [None]
  - MALAISE [None]
  - PYREXIA [None]
  - VERTIGO [None]
  - VOMITING [None]
